FAERS Safety Report 8377746-6 (Version None)
Quarter: 2012Q2

REPORT INFORMATION
  Report Type: 
  Country: None (occurrence: None)
  Receive Date: 20120522
  Receipt Date: 20120515
  Transmission Date: 20120825
  Serious: Yes (Other)
  Sender: FDA-Public Use
  Company Number: US-GLAXOSMITHKLINE-B0802443A

PATIENT
  Sex: Female

DRUGS (3)
  1. MELPHALAN [Suspect]
     Indication: MALIGNANT MELANOMA
     Route: 042
  2. SORAFENIB [Suspect]
     Indication: MALIGNANT MELANOMA
     Route: 065
  3. PAPAVERINE [Concomitant]
     Route: 065

REACTIONS (2)
  - TOXICITY TO VARIOUS AGENTS [None]
  - BLOOD CREATINE PHOSPHOKINASE INCREASED [None]
